FAERS Safety Report 8304837-8 (Version None)
Quarter: 2012Q2

REPORT INFORMATION
  Report Type: 
  Country: None (occurrence: None)
  Receive Date: 20120423
  Receipt Date: 20120412
  Transmission Date: 20120825
  Serious: Yes (Hospitalization)
  Sender: FDA-Public Use
  Company Number: JP-PFIZER INC-2011282990

PATIENT
  Age: 51 Year
  Sex: Male
  Weight: 63 kg

DRUGS (11)
  1. VANCOMYCIN [Suspect]
     Indication: ENDOCARDITIS
     Dosage: UNK
     Dates: start: 20110706, end: 20110721
  2. WARFARIN [Concomitant]
     Indication: ANTICOAGULANT THERAPY
     Dosage: UNK
     Dates: start: 20110617
  3. ZYVOX [Concomitant]
     Indication: ENDOCARDITIS
     Dosage: UNK
     Route: 042
     Dates: start: 20110721
  4. ARGATROBAN [Suspect]
     Dosage: 0.4286MCG/KG/MIN
     Route: 041
     Dates: start: 20110723, end: 20110724
  5. ARGATROBAN [Suspect]
     Dosage: 0.357MCG/KG/MIN
     Route: 041
     Dates: start: 20110724, end: 20110729
  6. ARGATROBAN [Suspect]
     Dosage: 0.4286MCG/KG/MIN
     Route: 041
     Dates: start: 20110729, end: 20110730
  7. LASIX [Concomitant]
     Route: 042
  8. RIFAMPICIN [Suspect]
     Indication: ENDOCARDITIS
     Dosage: UNK
     Route: 048
     Dates: start: 20110707, end: 20110722
  9. HEPARIN [Suspect]
     Indication: ANTICOAGULANT THERAPY
     Dosage: UNK
     Route: 041
     Dates: start: 20110716, end: 20110723
  10. ARBEKACIN SULFATE [Suspect]
     Indication: ENDOCARDITIS
     Dosage: UNK
     Route: 051
     Dates: start: 20110707, end: 20110721
  11. ARGATROBAN [Suspect]
     Indication: HEPARIN-INDUCED THROMBOCYTOPENIA
     Dosage: 0.5MCG/KG/MIN
     Route: 041
     Dates: start: 20110723, end: 20110723

REACTIONS (3)
  - EOSINOPHIL COUNT INCREASED [None]
  - HEPATIC FUNCTION ABNORMAL [None]
  - PYREXIA [None]
